FAERS Safety Report 7619570-5 (Version None)
Quarter: 2011Q3

REPORT INFORMATION
  Report Type: 
  Country: None (occurrence: None)
  Receive Date: 20110719
  Receipt Date: 20110705
  Transmission Date: 20111222
  Serious: Yes (Other)
  Sender: FDA-Public Use
  Company Number: AU-MYLANLABS-2011S1014386

PATIENT
  Age: 32 Year
  Sex: Male

DRUGS (5)
  1. METHADONE HCL [Interacting]
     Route: 065
  2. METHYLENEDIOXYMETHAMPHETAMINE [Suspect]
  3. DIAZEPAM [Concomitant]
     Route: 065
  4. METHAMPHETAMINE HYDROCHLORIDE [Interacting]
     Route: 065
  5. ALPRAZOLAM [Concomitant]
     Route: 065

REACTIONS (1)
  - DRUG INTERACTION [None]
